FAERS Safety Report 7777532-1 (Version None)
Quarter: 2011Q3

REPORT INFORMATION
  Report Type: 
  Country: None (occurrence: None)
  Receive Date: 20110926
  Receipt Date: 20110913
  Transmission Date: 20111222
  Serious: Yes (Other)
  Sender: FDA-Public Use
  Company Number: DE-ELI_LILLY_AND_COMPANY-DE200902003645

PATIENT
  Sex: Male
  Weight: 106 kg

DRUGS (8)
  1. ZYPREXA [Suspect]
     Indication: SCHIZOPHRENIA, PARANOID TYPE
     Dosage: 15 MG, QD
     Route: 048
     Dates: start: 20020201, end: 20031201
  2. ZYPREXA [Suspect]
     Dosage: 5 MG, QD
     Route: 048
     Dates: start: 20091201
  3. PROSTAGUTT /00494901/ [Concomitant]
     Dosage: 160/120 UNK, UNKNOWN
     Route: 065
     Dates: start: 20090101
  4. ZYPREXA [Suspect]
     Dosage: 2.5 MG, QD
  5. CHLORPROTHIXEN [Concomitant]
     Dosage: 100 MG, UNK
  6. ZYPREXA [Suspect]
     Dosage: 10 MG, QD
     Route: 065
     Dates: start: 20040101, end: 20070801
  7. ZYPREXA [Suspect]
     Dosage: 7.5 MG, QD
     Route: 065
     Dates: start: 20071001, end: 20090901
  8. IBUPROFEN [Concomitant]

REACTIONS (21)
  - PROSTATOMEGALY [None]
  - WEIGHT INCREASED [None]
  - ALOPECIA [None]
  - URINARY RETENTION [None]
  - DRY MOUTH [None]
  - URINARY INCONTINENCE [None]
  - WHITE BLOOD CELL DISORDER [None]
  - BLOOD GLUCOSE INCREASED [None]
  - DIABETES MELLITUS [None]
  - NEUROLEPTIC MALIGNANT SYNDROME [None]
  - BLADDER NECK OBSTRUCTION [None]
  - BENIGN PROSTATIC HYPERPLASIA [None]
  - RHABDOMYOLYSIS [None]
  - BLOOD PRESSURE INCREASED [None]
  - GLYCOSYLATED HAEMOGLOBIN INCREASED [None]
  - BODY FAT DISORDER [None]
  - FATIGUE [None]
  - ERECTILE DYSFUNCTION [None]
  - MICTURITION DISORDER [None]
  - UMBILICAL HERNIA [None]
  - CONSTIPATION [None]
